FAERS Safety Report 15233155 (Version 1)
Quarter: 2018Q3

REPORT INFORMATION
  Report Type: Spontaneous
  Country: US (occurrence: US)
  Receive Date: 20180802
  Receipt Date: 20180802
  Transmission Date: 20181010
  Serious: No
  Sender: FDA-Public Use
  Company Number: US-ALLERGAN-1763760US

PATIENT
  Age: 83 Year
  Sex: Female
  Weight: 52.61 kg

DRUGS (7)
  1. LATANOPROST. [Suspect]
     Active Substance: LATANOPROST
     Indication: OPEN ANGLE GLAUCOMA
     Dosage: 2 GTT, QHS
     Route: 047
     Dates: start: 20121213
  2. PRAVACOL [Concomitant]
     Active Substance: PRAVASTATIN SODIUM
     Indication: BLOOD CHOLESTEROL
     Dosage: UNK
     Route: 065
  3. VITAMINS NOS [Concomitant]
     Active Substance: VITAMINS
     Dosage: UNK
     Route: 065
  4. XALATAN [Suspect]
     Active Substance: LATANOPROST
     Indication: OPEN ANGLE GLAUCOMA
     Dosage: 2 GTT, QHS
     Route: 047
     Dates: start: 20090507
  5. BETAGAN [Suspect]
     Active Substance: LEVOBUNOLOL HYDROCHLORIDE
     Indication: OPEN ANGLE GLAUCOMA
     Dosage: 2 GTT, QD
     Route: 047
     Dates: start: 20111014
  6. BABY ASPIRIN [Concomitant]
     Active Substance: ASPIRIN
     Indication: PROPHYLAXIS
     Dosage: UNK
     Route: 065
  7. ATIVAN [Concomitant]
     Active Substance: LORAZEPAM
     Indication: ANXIETY
     Dosage: UNK
     Route: 065

REACTIONS (15)
  - Sjogren^s syndrome [Unknown]
  - Nasal mucosal disorder [Unknown]
  - Glossodynia [Unknown]
  - Drooling [Unknown]
  - Lip swelling [Unknown]
  - Lip dry [Unknown]
  - Lip erythema [Unknown]
  - Burning sensation [Unknown]
  - Chapped lips [Unknown]
  - Rosacea [Unknown]
  - Reaction to preservatives [Unknown]
  - Feeling abnormal [Unknown]
  - Rash erythematous [Not Recovered/Not Resolved]
  - Accidental exposure to product [Unknown]
  - Tongue discomfort [Recovered/Resolved]

NARRATIVE: CASE EVENT DATE: 2012
